FAERS Safety Report 7343223-4 (Version None)
Quarter: 2011Q1

REPORT INFORMATION
  Report Type: 
  Country: None (occurrence: None)
  Receive Date: 20110310
  Receipt Date: 20110302
  Transmission Date: 20110831
  Serious: No
  Sender: FDA-Public Use
  Company Number: US-JNJFOC-20110302178

PATIENT
  Sex: Female

DRUGS (7)
  1. PLAVIX [Concomitant]
     Indication: CARDIAC DISORDER
     Route: 048
  2. CYMBALTA [Concomitant]
     Route: 048
  3. UNKNOWN MEDICATION [Concomitant]
     Route: 048
  4. FENTANYL [Suspect]
     Indication: NEURALGIA
     Route: 065
  5. PERCOCET [Concomitant]
     Route: 048
  6. CALCIUM ACETATE [Concomitant]
     Dosage: 2 CAPSULES AFTER EACH MEAL
     Route: 048
  7. ASPIRIN [Concomitant]
     Indication: CARDIAC DISORDER
     Route: 048

REACTIONS (1)
  - INAPPROPRIATE SCHEDULE OF DRUG ADMINISTRATION [None]
